FAERS Safety Report 25485657 (Version 1)
Quarter: 2025Q2

REPORT INFORMATION
  Report Type: Spontaneous
  Country: HR (occurrence: None)
  Receive Date: 20250626
  Receipt Date: 20250626
  Transmission Date: 20250717
  Serious: Yes (Life-Threatening, Hospitalization, Other)
  Sender: B. BRAUN MEDICAL INC.
  Company Number: None

PATIENT
  Age: 30 Year
  Sex: Female
  Weight: 95 kg

DRUGS (4)
  1. SODIUM CHLORIDE [Suspect]
     Active Substance: SODIUM CHLORIDE
     Indication: Medication dilution
     Dosage: 0,9% NACI A 500 ML (RAZRJEDJENJE)?0.9% NACL A 500 ML (DILUTION)
     Dates: start: 20250526, end: 20250526
  2. SODIUM CHLORIDE [Suspect]
     Active Substance: SODIUM CHLORIDE
     Dosage: 0,9% NACI A 500 ML (RAZRJEDJENJE)
     Dates: start: 20250522, end: 20250525
  3. AMOXICILLIN\CLAVULANIC ACID [Suspect]
     Active Substance: AMOXICILLIN\CLAVULANIC ACID
     Indication: Prophylaxis
     Dosage: 1 DF= 1000 MG/200 MG = JEDNA BOCICA SADRZI 1000 MG AMOKSICILINA U OBLIKU AMOKSICILINNATRIJA I 200 MG KLAVULANSKE KISELINE U OBLIKU KALIJEVOG KLAVULANATA?1 DF= 1000 MG/200 MG = ONE VIAL CONTAINS 1000 MG OF AMOXICILLIN IN THE FORM OF AMOXICILLIN SODIUM AND 200 MG OF CLAVULANIC ACID IN THE FORM OF POTA
     Dates: start: 20250526, end: 20250526
  4. AMOXICILLIN\CLAVULANIC ACID [Suspect]
     Active Substance: AMOXICILLIN\CLAVULANIC ACID
     Dosage: 1 DF= 1000 MG/200 MG = JEDNA BOCICA SADRZI 1000 MG AMOKSICILINA U OBLIKU AMOKSICILINNATRIJA I 200 MG KLAVULANSKE KISELINE U OBLIKU KALIJEVOG KLAVULANATA??1 DF= 1000 MG/200 MG = ONE VIAL CONTAINS 1000 MG OF AMOXICILLIN IN THE FORM OF AMOXICILLIN SODIUM AND 200 MG OF CLAVULANIC ACID IN THE FORM OF POT
     Dates: start: 20250522, end: 20250525

REACTIONS (9)
  - Chills [Recovering/Resolving]
  - Oxygen saturation decreased [Recovering/Resolving]
  - Bradycardia [Recovering/Resolving]
  - Livedo reticularis [Recovering/Resolving]
  - Body temperature increased [Recovering/Resolving]
  - Suspected product quality issue [Recovering/Resolving]
  - Anaphylactic reaction [Recovering/Resolving]
  - Hypertension [Recovering/Resolving]
  - Tachycardia [Recovering/Resolving]

NARRATIVE: CASE EVENT DATE: 20250526
